FAERS Safety Report 13139917 (Version 1)
Quarter: 2017Q1

REPORT INFORMATION
  Report Type: Spontaneous
  Country: US (occurrence: US)
  Receive Date: 20170123
  Receipt Date: 20170123
  Transmission Date: 20170428
  Serious: Yes (Other)
  Sender: FDA-Public Use
  Company Number: US-JUBILANT CADISTA PHARMACEUTICALS-2017JUB00019

PATIENT
  Age: 53 Year
  Sex: Male

DRUGS (12)
  1. PREDNISONE. [Suspect]
     Active Substance: PREDNISONE
     Indication: HYPOPHYSITIS
     Dosage: 40 MG, 1X/DAY, TAPERED TO 20 MG
     Route: 065
  2. THYROID HORMONE REPLACEMENT [Concomitant]
     Route: 065
  3. METHYLPREDNISOLONE. [Suspect]
     Active Substance: METHYLPREDNISOLONE
     Dosage: 250 MG, EVERY 6 HOURS
     Route: 042
  4. ENOXAPARIN [Concomitant]
     Active Substance: ENOXAPARIN
     Route: 065
  5. METHYLPREDNISOLONE. [Suspect]
     Active Substance: METHYLPREDNISOLONE
     Indication: OPTIC NEUROPATHY
     Dosage: 1 G, 1X/DAY
     Route: 042
  6. METHYLPREDNISOLONE. [Suspect]
     Active Substance: METHYLPREDNISOLONE
     Indication: MENINGITIS ASEPTIC
     Dosage: 1 G, 1X/DAY
     Route: 042
  7. TESTOSTERONE REPLACEMENT [Concomitant]
     Active Substance: TESTOSTERONE
     Route: 065
  8. PREDNISONE. [Suspect]
     Active Substance: PREDNISONE
     Dosage: 40 MG, 1X/DAY
     Route: 065
  9. PREDNISONE. [Suspect]
     Active Substance: PREDNISONE
     Dosage: 100 MG, 1X/DAY, SLOW TAPER
     Route: 065
  10. PREDNISONE. [Suspect]
     Active Substance: PREDNISONE
     Dosage: 80 MG, 1X/DAY
     Route: 065
  11. PREDNISONE. [Suspect]
     Active Substance: PREDNISONE
     Dosage: 100 MG, 1X/DAY, TAPERED TO 80 MG
     Route: 065
  12. METHYLPREDNISOLONE. [Suspect]
     Active Substance: METHYLPREDNISOLONE
     Dosage: 250 MG, EVERY 6 HOURS
     Route: 042

REACTIONS (3)
  - Depression [Unknown]
  - Catatonia [Unknown]
  - Myopathy [Unknown]
